FAERS Safety Report 8185283-7 (Version None)
Quarter: 2012Q1

REPORT INFORMATION
  Report Type: 
  Country: None (occurrence: None)
  Receive Date: 20120305
  Receipt Date: 20120224
  Transmission Date: 20120608
  Serious: Yes (Other)
  Sender: FDA-Public Use
  Company Number: PHFR2012GB001380

PATIENT
  Sex: Female

DRUGS (3)
  1. OLANZAPINE [Concomitant]
  2. CLOZARIL [Suspect]
     Dosage: 300 MG, UNK
     Route: 048
     Dates: start: 20120213
  3. CLOZARIL [Suspect]
     Indication: SCHIZOPHRENIA
     Route: 048
     Dates: start: 20080331

REACTIONS (1)
  - INCORRECT DOSE ADMINISTERED [None]
